FAERS Safety Report 19251708 (Version 1)
Quarter: 2021Q2

REPORT INFORMATION
  Report Type: Report from Study
  Country: EG (occurrence: EG)
  Receive Date: 20210512
  Receipt Date: 20210512
  Transmission Date: 20210717
  Serious: Yes (Other)
  Sender: FDA-Public Use
  Company Number: NVSC2021EG099093

PATIENT
  Age: 50 Year
  Sex: Female

DRUGS (12)
  1. LUPRON [Suspect]
     Active Substance: LEUPROLIDE ACETATE
     Indication: MENSTRUAL CYCLE MANAGEMENT
     Dosage: UNK (1 INJECTION EVERY MONTH TO)
     Route: 065
     Dates: start: 2013, end: 2015
  2. AROMASIN [Concomitant]
     Active Substance: EXEMESTANE
     Dosage: UNK
     Route: 065
     Dates: start: 20201207
  3. FASLODEX [Concomitant]
     Active Substance: FULVESTRANT
     Dosage: 2 DF, QMO
     Route: 065
  4. FEMARA [Suspect]
     Active Substance: LETROZOLE
     Indication: METASTASES TO LYMPH NODES
  5. FASLODEX [Concomitant]
     Active Substance: FULVESTRANT
     Indication: PRODUCT USED FOR UNKNOWN INDICATION
     Dosage: 2 DF, QD
     Route: 065
  6. AROMASIN [Concomitant]
     Active Substance: EXEMESTANE
     Indication: PRODUCT USED FOR UNKNOWN INDICATION
     Dosage: 1 DF, QD
     Route: 065
     Dates: start: 2013, end: 2017
  7. CANDALKAN [Concomitant]
     Indication: PRODUCT USED FOR UNKNOWN INDICATION
     Dosage: 1 DF, QD (IN MORNING)
     Route: 065
  8. FASLODEX [Concomitant]
     Active Substance: FULVESTRANT
     Dosage: 2 DF, QW
     Route: 065
  9. DIAMICRON [Concomitant]
     Active Substance: GLICLAZIDE
     Indication: PRODUCT USED FOR UNKNOWN INDICATION
     Dosage: 1 DF, QD (IN MORNING), 60 MR
     Route: 065
  10. FASLODEX [Concomitant]
     Active Substance: FULVESTRANT
     Dosage: 2 DF, Q2W
     Route: 065
  11. FEMARA [Suspect]
     Active Substance: LETROZOLE
     Indication: METASTASES TO LUNG
     Dosage: 1 DF, QD
     Route: 048
     Dates: start: 201307, end: 201310
  12. JANUMET [Concomitant]
     Active Substance: METFORMIN HYDROCHLORIDE\SITAGLIPTIN PHOSPHATE
     Indication: PRODUCT USED FOR UNKNOWN INDICATION
     Dosage: 1 DF, QD (AFTER DINNER)
     Route: 065

REACTIONS (2)
  - Blood pressure abnormal [Not Recovered/Not Resolved]
  - Diabetes mellitus [Not Recovered/Not Resolved]

NARRATIVE: CASE EVENT DATE: 201309
